FAERS Safety Report 11057505 (Version 1)
Quarter: 2015Q2

REPORT INFORMATION
  Report Type: Spontaneous
  Country: SE (occurrence: SE)
  Receive Date: 20150422
  Receipt Date: 20150422
  Transmission Date: 20150821
  Serious: Yes (Other)
  Sender: FDA-Public Use
  Company Number: SE-ALLERGAN-1506171US

PATIENT
  Age: 46 Year
  Sex: Male

DRUGS (7)
  1. OZURDEX [Suspect]
     Active Substance: DEXAMETHASONE
     Dosage: UNK, SINGLE
     Route: 031
  2. OZURDEX [Suspect]
     Active Substance: DEXAMETHASONE
     Dosage: UNK, SINGLE
     Route: 031
  3. OZURDEX [Suspect]
     Active Substance: DEXAMETHASONE
     Dosage: UNK, SINGLE
     Route: 031
  4. OZURDEX [Suspect]
     Active Substance: DEXAMETHASONE
     Dosage: UNK, SINGLE
     Route: 031
  5. OZURDEX [Suspect]
     Active Substance: DEXAMETHASONE
     Indication: DIABETIC RETINAL OEDEMA
     Dosage: 0.7 MG, SINGLE
     Route: 031
  6. OZURDEX [Suspect]
     Active Substance: DEXAMETHASONE
     Dosage: UNK, SINGLE
     Route: 031
  7. OZURDEX [Suspect]
     Active Substance: DEXAMETHASONE
     Dosage: UNK, SINGLE
     Route: 031

REACTIONS (3)
  - Cataract [Unknown]
  - Retinal haemorrhage [Unknown]
  - Intraocular pressure increased [Unknown]
